FAERS Safety Report 19191211 (Version 4)
Quarter: 2021Q4

REPORT INFORMATION
  Report Type: Spontaneous
  Country: DE (occurrence: DE)
  Receive Date: 20210428
  Receipt Date: 20211219
  Transmission Date: 20220303
  Serious: Yes (Hospitalization, Other)
  Sender: FDA-Public Use
  Company Number: PHHY2019DE023919

PATIENT
  Age: 64 Year
  Sex: Male

DRUGS (15)
  1. PROVAS [Suspect]
     Active Substance: VALSARTAN
     Indication: Hypertension
     Dosage: 1 DF, QD (IN THE MORNING)
     Route: 065
     Dates: start: 2009, end: 2013
  2. PROVAS [Suspect]
     Active Substance: VALSARTAN
     Dosage: 320 MG / 25 MG, QD (IN MORNING)
     Route: 065
     Dates: start: 20131031, end: 2013
  3. PROVAS [Suspect]
     Active Substance: VALSARTAN
     Dosage: 300 MG, QD (IN THE MORNING)
     Route: 065
  4. PROVAS [Suspect]
     Active Substance: VALSARTAN
     Dosage: 172 OT IN THE MORNING
     Route: 065
  5. VALSARTAN [Suspect]
     Active Substance: VALSARTAN
     Indication: Hypertension
     Dosage: 320 MG, QD
     Route: 065
     Dates: start: 2014, end: 2018
  6. DICLOFENAC [Concomitant]
     Active Substance: DICLOFENAC
     Indication: Back pain
     Dosage: 150
     Route: 065
  7. PANCRELIPASE [Concomitant]
     Active Substance: PANCRELIPASE
     Indication: Dyspepsia
     Dosage: 4000
     Route: 065
  8. SANTALYT [Concomitant]
     Indication: Gastroenteritis
     Route: 065
  9. HAVRIX [Concomitant]
     Active Substance: HEPATITIS A VIRUS STRAIN HM175 ANTIGEN (FORMALDEHYDE INACTIVATED)
     Indication: Hepatitis A
     Dosage: UNK
     Route: 065
     Dates: start: 20120206
  10. HAVRIX [Concomitant]
     Active Substance: HEPATITIS A VIRUS STRAIN HM175 ANTIGEN (FORMALDEHYDE INACTIVATED)
     Indication: Prophylaxis
  11. DICLOFENAC DIETHYLAMINE [Concomitant]
     Active Substance: DICLOFENAC DIETHYLAMINE
     Indication: Product used for unknown indication
     Route: 065
  12. NICORETTE [Concomitant]
     Active Substance: NICOTINE
     Indication: Product used for unknown indication
     Dosage: SPRAY
     Route: 065
  13. CANDESARTAN CILEXETIL [Concomitant]
     Active Substance: CANDESARTAN CILEXETIL
     Indication: Hypertension
     Dosage: 32 MG, QD, IN THE MORNING
     Route: 065
  14. CANDESARTAN CILEXETIL [Concomitant]
     Active Substance: CANDESARTAN CILEXETIL
     Dosage: 16 MG
     Route: 065
  15. ATORVASTATIN [Concomitant]
     Active Substance: ATORVASTATIN
     Indication: Product used for unknown indication
     Dosage: 10 MG, QD, ONCE DAILY IN THE EVENING / ONCE DAILY IN THE MORNING
     Route: 065

REACTIONS (75)
  - Fall [Unknown]
  - Pain in extremity [Unknown]
  - Skull fracture [Unknown]
  - Skin abrasion [Unknown]
  - Nightmare [Unknown]
  - Road traffic accident [Recovering/Resolving]
  - Post-traumatic neck syndrome [Recovered/Resolved]
  - Adjustment disorder [Unknown]
  - Neck pain [Recovering/Resolving]
  - Myalgia [Recovering/Resolving]
  - Phobia of driving [Unknown]
  - Tremor [Unknown]
  - Hyperhidrosis [Unknown]
  - Anxiety [Unknown]
  - Spinal flattening [Unknown]
  - Dizziness [Recovering/Resolving]
  - Headache [Recovering/Resolving]
  - Diabetes mellitus [Unknown]
  - Vascular encephalopathy [Unknown]
  - Blindness [Unknown]
  - Normal tension glaucoma [Unknown]
  - Optic ischaemic neuropathy [Unknown]
  - Carotid artery disease [Unknown]
  - Aortic arteriosclerosis [Unknown]
  - Sleep disorder [Not Recovered/Not Resolved]
  - Fear [Unknown]
  - Panic reaction [Unknown]
  - Heart rate increased [Unknown]
  - Muscle tightness [Unknown]
  - Abdominal discomfort [Unknown]
  - Restlessness [Unknown]
  - Disturbance in attention [Unknown]
  - Emotional distress [Unknown]
  - Headache [Recovered/Resolved]
  - Quality of life decreased [Unknown]
  - Hyperlipidaemia [Unknown]
  - Nerve degeneration [Unknown]
  - Influenza like illness [Unknown]
  - Bursitis [Unknown]
  - Osteoarthritis [Unknown]
  - Spinal osteoarthritis [Unknown]
  - Hypercholesterolaemia [Unknown]
  - Low density lipoprotein increased [Unknown]
  - Post-traumatic stress disorder [Unknown]
  - Condition aggravated [Unknown]
  - Dysphonia [Unknown]
  - Ligament sprain [Unknown]
  - Muscle strain [Unknown]
  - Thyroid disorder [Unknown]
  - Goitre [Unknown]
  - Arteriosclerosis [Unknown]
  - SARS-CoV-2 test positive [Unknown]
  - Pain [Unknown]
  - Rhinorrhoea [Unknown]
  - Oropharyngeal pain [Unknown]
  - Paranasal sinus discomfort [Unknown]
  - Haemochromatosis [Unknown]
  - Dyspnoea exertional [Unknown]
  - Rotator cuff syndrome [Unknown]
  - Synovitis [Unknown]
  - Emphysema [Unknown]
  - Intervertebral disc protrusion [Unknown]
  - Facet joint syndrome [Unknown]
  - Diverticulum intestinal [Unknown]
  - Kyphosis [Unknown]
  - Pinguecula [Unknown]
  - Accident [Unknown]
  - Depression [Unknown]
  - Dizziness [Recovered/Resolved]
  - Hypersensitivity [Unknown]
  - Sinusitis [Unknown]
  - Fatigue [Recovered/Resolved]
  - Nausea [Recovered/Resolved]
  - Cough [Unknown]
  - Hypotension [Unknown]

NARRATIVE: CASE EVENT DATE: 20120522
